FAERS Safety Report 23124982 (Version 5)
Quarter: 2024Q1

REPORT INFORMATION
  Report Type: Spontaneous
  Country: AR (occurrence: AR)
  Receive Date: 20231030
  Receipt Date: 20240102
  Transmission Date: 20240410
  Serious: No
  Sender: FDA-Public Use
  Company Number: AR-PFIZER INC-202300319237

PATIENT
  Age: 10 Year
  Sex: Male

DRUGS (2)
  1. GENOTROPIN [Suspect]
     Active Substance: SOMATROPIN
     Indication: Short stature
     Dosage: 1 TO 1.4 MG 7 TIMES PER WEEK
     Dates: start: 20220225
  2. GENOTROPIN [Suspect]
     Active Substance: SOMATROPIN
     Dosage: 1.2 MG THE FIRST 4 DAYS AND 1.4 MG THE OTHER 3 DAYS

REACTIONS (4)
  - Poor quality device used [Unknown]
  - Injection site pain [Unknown]
  - Device failure [Unknown]
  - Needle issue [Unknown]
